FAERS Safety Report 5385619-6 (Version None)
Quarter: 2007Q3

REPORT INFORMATION
  Report Type: 
  Country: None (occurrence: None)
  Receive Date: 20070712
  Receipt Date: 20070702
  Transmission Date: 20080115
  Serious: Yes (Hospitalization, Other)
  Sender: FDA-Public Use
  Company Number: US-ASTRAZENECA-2007UW01948

PATIENT
  Age: 11741 Day
  Sex: Female
  Weight: 100 kg

DRUGS (26)
  1. SEROQUEL [Suspect]
     Indication: SLEEP DISORDER
     Dosage: 25-100 MG
     Route: 048
     Dates: start: 20020222, end: 20040716
  2. ZYPREXA [Concomitant]
     Dates: start: 20020213
  3. EFFEXOR [Concomitant]
  4. VALPROIC ACID [Concomitant]
  5. ASACOL [Concomitant]
  6. DEPO-PROVERA [Concomitant]
  7. REMERON [Concomitant]
  8. DEPAKOTE [Concomitant]
  9. PAXIL [Concomitant]
  10. LEXAPRO [Concomitant]
  11. NEXIUM [Concomitant]
  12. TORADOL [Concomitant]
  13. CIPRO [Concomitant]
  14. AUGMENTIN '125' [Concomitant]
  15. ZOFRAN [Concomitant]
  16. DILAUDID [Concomitant]
  17. FLAGYL [Concomitant]
  18. SOLU-MEDROL [Concomitant]
  19. PROTONIX [Concomitant]
  20. CHOLESTYRAMINE [Concomitant]
  21. WELLBUTRIN [Concomitant]
  22. ATIVAN [Concomitant]
  23. PREDNISONE [Concomitant]
  24. DOXYCYCLINE [Concomitant]
  25. ACETAMINOPHEN/HYDROCODONE [Concomitant]
  26. TOPAMAX [Concomitant]

REACTIONS (20)
  - ABDOMINAL PAIN [None]
  - ABSCESS [None]
  - ANAEMIA [None]
  - CLOSTRIDIUM DIFFICILE COLITIS [None]
  - COLITIS ULCERATIVE [None]
  - CONSTIPATION [None]
  - DEHYDRATION [None]
  - DEPRESSION [None]
  - GASTROINTESTINAL HAEMORRHAGE [None]
  - HEADACHE [None]
  - HYPERVENTILATION [None]
  - MAJOR DEPRESSION [None]
  - OVARIAN CYST [None]
  - PELVIC PAIN [None]
  - PYODERMA GANGRENOSUM [None]
  - SUICIDAL IDEATION [None]
  - TYPE 2 DIABETES MELLITUS [None]
  - URINARY TRACT INFECTION [None]
  - UTERINE LEIOMYOMA [None]
  - WEIGHT INCREASED [None]
